FAERS Safety Report 18123932 (Version 1)
Quarter: 2020Q3

REPORT INFORMATION
  Report Type: Spontaneous
  Country: US (occurrence: US)
  Receive Date: 20200806
  Receipt Date: 20200806
  Transmission Date: 20201103
  Serious: Yes (Other)
  Sender: FDA-Public Use
  Company Number: None

PATIENT
  Age: 45 Year
  Sex: Female

DRUGS (1)
  1. HUMIRA [Suspect]
     Active Substance: ADALIMUMAB
     Indication: RHEUMATOID ARTHRITIS
     Dosage: ?          OTHER DOSE:40MG/0.8ML;OTHER FREQUENCY:EVERY 2 WEEKS;?
     Route: 058
     Dates: start: 20200313

REACTIONS (5)
  - Paraesthesia [None]
  - Feeling hot [None]
  - Burning sensation [None]
  - Erythema [None]
  - Pain in extremity [None]

NARRATIVE: CASE EVENT DATE: 202007
